FAERS Safety Report 12423603 (Version 1)
Quarter: 2016Q2

REPORT INFORMATION
  Report Type: Spontaneous
  Country: US (occurrence: None)
  Receive Date: 20160531
  Receipt Date: 20160531
  Transmission Date: 20160815
  Serious: No
  Sender: FDA-Public Use
  Company Number: None

PATIENT
  Age: 74 Year
  Sex: Female

DRUGS (1)
  1. IBANDRONATE SODIUM. [Suspect]
     Active Substance: IBANDRONATE SODIUM
     Indication: OSTEOPOROSIS
     Route: 048
     Dates: start: 20160502

REACTIONS (7)
  - Asthenia [None]
  - Abdominal distension [None]
  - Arthralgia [None]
  - Pyrexia [None]
  - Insomnia [None]
  - Musculoskeletal stiffness [None]
  - Blood pressure increased [None]

NARRATIVE: CASE EVENT DATE: 20160502
